FAERS Safety Report 7725871-2 (Version None)
Quarter: 2011Q3

REPORT INFORMATION
  Report Type: 
  Country: None (occurrence: None)
  Receive Date: 20110830
  Receipt Date: 20110819
  Transmission Date: 20111222
  Serious: Yes (Other)
  Sender: FDA-Public Use
  Company Number: TPA2011A05079

PATIENT
  Age: 84 Year
  Sex: Male

DRUGS (10)
  1. COUMADIN [Concomitant]
  2. FENOFIBRATE [Concomitant]
  3. BYSTOLIC [Concomitant]
  4. PROSCAR [Concomitant]
  5. LASIX [Concomitant]
  6. SINGULAIR [Concomitant]
  7. ACTOS [Suspect]
     Dosage: 45 MG
     Route: 048
     Dates: start: 20110101
  8. FISH OIL (FISH OIL) [Concomitant]
  9. CRESTOR [Concomitant]
  10. DIGOXIN [Concomitant]

REACTIONS (1)
  - BLADDER TRANSITIONAL CELL CARCINOMA [None]
